FAERS Safety Report 10615786 (Version 1)
Quarter: 2014Q4

REPORT INFORMATION
  Report Type: Spontaneous
  Country: US (occurrence: None)
  Receive Date: 20141125
  Receipt Date: 20141125
  Transmission Date: 20150529
  Serious: Yes (Disabling)
  Sender: FDA-Public Use
  Company Number: None

PATIENT
  Age: 61 Year
  Sex: Male
  Weight: 89.81 kg

DRUGS (5)
  1. TRAZODONE [Concomitant]
     Active Substance: TRAZODONE HYDROCHLORIDE
  2. FLOMAX [Concomitant]
     Active Substance: TAMSULOSIN HYDROCHLORIDE
  3. CHLORATHALIDONE [Concomitant]
  4. AVODART [Suspect]
     Active Substance: DUTASTERIDE
     Indication: BENIGN PROSTATIC HYPERPLASIA
     Route: 048
     Dates: start: 20120901, end: 20120930
  5. METOPROLOL [Concomitant]
     Active Substance: METOPROLOL

REACTIONS (7)
  - Hot flush [None]
  - Disturbance in attention [None]
  - Decreased appetite [None]
  - Depression [None]
  - Panic attack [None]
  - Anhedonia [None]
  - Insomnia [None]

NARRATIVE: CASE EVENT DATE: 20120901
